FAERS Safety Report 5058240-7 (Version None)
Quarter: 2006Q3

REPORT INFORMATION
  Report Type: 
  Country: None (occurrence: None)
  Receive Date: 20060721
  Receipt Date: 20060627
  Transmission Date: 20061208
  Serious: Yes (Hospitalization)
  Sender: FDA-Public Use
  Company Number: PHHO2006AU10389

PATIENT
  Age: 65 Year
  Sex: Male

DRUGS (5)
  1. RAD001 [Suspect]
     Indication: RENAL TRANSPLANT
     Dosage: NO TREATMENT
  2. NEORAL [Suspect]
     Indication: RENAL TRANSPLANT
     Dosage: 800 MG / DAY
     Route: 048
     Dates: start: 20060620, end: 20060626
  3. MYFORTIC [Concomitant]
     Indication: RENAL TRANSPLANT
     Dosage: 720 MG, BID
     Route: 048
     Dates: start: 20060620
  4. NITRAZEPAM [Suspect]
     Dosage: PRN
     Dates: start: 20020101
  5. NORMISON [Suspect]

REACTIONS (8)
  - ABDOMINAL DISTENSION [None]
  - DRUG WITHDRAWAL SYNDROME [None]
  - HALLUCINATION [None]
  - ILEUS PARALYTIC [None]
  - RENAL IMPAIRMENT [None]
  - SOMNOLENCE [None]
  - SURGERY [None]
  - URINE OUTPUT DECREASED [None]
